FAERS Safety Report 6084571-8 (Version None)
Quarter: 2009Q1

REPORT INFORMATION
  Report Type: 
  Country: None (occurrence: None)
  Receive Date: 20090219
  Receipt Date: 20090209
  Transmission Date: 20090719
  Serious: Yes (Other)
  Sender: FDA-Public Use
  Company Number: US-GILEAD-2009-0020240

PATIENT
  Age: 53 Year
  Sex: Male
  Weight: 66 kg

DRUGS (1)
  1. VISTIDE [Suspect]
     Indication: PAPILLOMA VIRAL INFECTION
     Route: 061
     Dates: start: 20080523, end: 20080927

REACTIONS (1)
  - SQUAMOUS CELL CARCINOMA [None]
